FAERS Safety Report 18460400 (Version 2)
Quarter: 2021Q3

REPORT INFORMATION
  Report Type: Report from Study
  Country: DE (occurrence: DE)
  Receive Date: 20201103
  Receipt Date: 20210719
  Transmission Date: 20211014
  Serious: Yes (Hospitalization, Other)
  Sender: FDA-Public Use
  Company Number: DE-TAKEDA-2020TUS044495

PATIENT
  Age: 9 Year
  Sex: Female

DRUGS (16)
  1. TEDUGLUTIDE [Suspect]
     Active Substance: TEDUGLUTIDE
     Dosage: 0.9 MILLIGRAM (0.05 MG/KG), 1 DOSE PER WEEK
     Route: 065
     Dates: start: 20200826
  2. CREON [Concomitant]
     Active Substance: PANCRELIPASE AMYLASE\PANCRELIPASE LIPASE\PANCRELIPASE PROTEASE
     Dosage: UNK
     Route: 048
     Dates: start: 20201003
  3. FERRLECIT [FERRIC SODIUM GLUCONATE COMPLEX] [Concomitant]
     Dosage: 1 25MG/50ML, 1/WEEK
     Route: 042
     Dates: start: 20210304
  4. LASIX [Concomitant]
     Active Substance: FUROSEMIDE
     Indication: DEHYDRATION
     Dosage: 15 MILLIGRAM, TID
     Route: 048
     Dates: start: 20210304
  5. TEDUGLUTIDE [Suspect]
     Active Substance: TEDUGLUTIDE
     Indication: SHORT-BOWEL SYNDROME
     Dosage: 0.8 MILLIGRAM (0.05 MG/KG), 7 DOSES PER WEEK
     Route: 065
     Dates: start: 20171001, end: 20200825
  6. TEDUGLUTIDE [Suspect]
     Active Substance: TEDUGLUTIDE
     Dosage: 0.9 MILLIGRAM (0.05 MG/KG), 1 DOSE PER WEEK
     Route: 065
     Dates: start: 20200826
  7. TEDUGLUTIDE [Suspect]
     Active Substance: TEDUGLUTIDE
     Indication: SHORT-BOWEL SYNDROME
     Dosage: 0.8 MILLIGRAM (0.05 MG/KG), 7 DOSES PER WEEK
     Route: 065
     Dates: start: 20171001, end: 20200825
  8. TEDUGLUTIDE [Suspect]
     Active Substance: TEDUGLUTIDE
     Dosage: 0.9 MILLIGRAM (0.05 MG/KG), 1 DOSE PER WEEK
     Route: 065
     Dates: start: 20200826
  9. BLEMAREN [Concomitant]
     Indication: RENAL FAILURE
     Dosage: 1 TAB, BID
     Route: 048
     Dates: start: 20210304
  10. TEDUGLUTIDE [Suspect]
     Active Substance: TEDUGLUTIDE
     Indication: SHORT-BOWEL SYNDROME
     Dosage: 0.8 MILLIGRAM (0.05 MG/KG), 7 DOSES PER WEEK
     Route: 065
     Dates: start: 20171001, end: 20200825
  11. TEDUGLUTIDE [Suspect]
     Active Substance: TEDUGLUTIDE
     Dosage: 0.9 MILLIGRAM (0.05 MG/KG), 1 DOSE PER WEEK
     Route: 065
     Dates: start: 20200826
  12. CREON [Concomitant]
     Active Substance: PANCRELIPASE AMYLASE\PANCRELIPASE LIPASE\PANCRELIPASE PROTEASE
     Indication: PANCREATIC FAILURE
     Dosage: UNK
     Route: 048
     Dates: start: 20200728, end: 20201002
  13. VITADRAL [Concomitant]
     Indication: VITAMIN A DEFICIENCY
     Dosage: 15 GTT DROPS, QD
     Route: 047
     Dates: start: 20200728
  14. TEDUGLUTIDE [Suspect]
     Active Substance: TEDUGLUTIDE
     Indication: SHORT-BOWEL SYNDROME
     Dosage: 0.8 MILLIGRAM (0.05 MG/KG), 7 DOSES PER WEEK
     Route: 065
     Dates: start: 20171001, end: 20200825
  15. FERRLECIT [FERRIC SODIUM GLUCONATE COMPLEX] [Concomitant]
     Indication: IRON DEFICIENCY ANAEMIA
     Dosage: UNK UNK, 1/WEEK
     Route: 042
     Dates: start: 20200825
  16. GRANOCYTE [Concomitant]
     Active Substance: LENOGRASTIM
     Indication: NEUTROPENIA
     Dosage: 1 INTERNATIONAL UNIT, ONCE EVERY 3 DAYS
     Route: 042
     Dates: start: 20210304

REACTIONS (5)
  - Neutropenia [Recovered/Resolved]
  - Leukopenia [Recovered/Resolved]
  - Upper respiratory tract infection [Recovered/Resolved]
  - Sepsis [Recovered/Resolved]
  - Pyrexia [Recovered/Resolved]

NARRATIVE: CASE EVENT DATE: 20200905
